FAERS Safety Report 6762859-2 (Version None)
Quarter: 2010Q2

REPORT INFORMATION
  Report Type: 
  Country: None (occurrence: None)
  Receive Date: 20100609
  Receipt Date: 20100527
  Transmission Date: 20101027
  Serious: Yes (Hospitalization)
  Sender: FDA-Public Use
  Company Number: US-PFIZER INC-2010067446

PATIENT
  Age: 58 Year
  Sex: Female
  Weight: 89.72 kg

DRUGS (9)
  1. DILANTIN-125 [Suspect]
     Dosage: UNK
  2. DECADRON [Suspect]
  3. MS CONTIN [Suspect]
  4. REMERON [Suspect]
  5. KEPPRA [Suspect]
  6. LEVAQUIN [Suspect]
  7. REGLAN [Suspect]
  8. ADVAIR DISKUS 100/50 [Suspect]
  9. ALBUTEROL [Suspect]

REACTIONS (1)
  - PULMONARY EMBOLISM [None]
